FAERS Safety Report 8733037 (Version 3)
Quarter: 2012Q4

REPORT INFORMATION
  Report Type: 
  Country: NL (occurrence: NL)
  Receive Date: 20120820
  Receipt Date: 20121018
  Transmission Date: 20130627
  Serious: Yes (Death)
  Sender: FDA-Public Use
  Company Number: NL-BAXTER-2012BAX014623

PATIENT
  Age: 45 Year
  Sex: Female

DRUGS (3)
  1. KIOVIG 100 MG/ML SOLUTION FOR INFUSION INTRAVENOUS USE VIAL (GLASS) 30 [Suspect]
     Indication: MYASTHENIA GRAVIS
     Route: 065
     Dates: start: 20091231
  2. KIOVIG 100 MG/ML SOLUTION FOR INFUSION INTRAVENOUS USE VIAL (GLASS) 30 [Suspect]
     Indication: INTENTIONAL USE FOR UNLABELED INDICATION
     Dosage: 2 VIALS OF 10 GRAMS
     Route: 065
     Dates: start: 20120626, end: 20120626
  3. KIOVIG 100 MG/ML SOLUTION FOR INFUSION INTRAVENOUS USE VIAL (GLASS) 30 [Suspect]
     Dosage: 2 VIALS OF 20 GRAMS
     Dates: start: 20120626, end: 20120626

REACTIONS (1)
  - Myasthenia gravis [Fatal]
